FAERS Safety Report 8019581-4 (Version None)
Quarter: 2012Q1

REPORT INFORMATION
  Report Type: 
  Country: None (occurrence: None)
  Receive Date: 20120103
  Receipt Date: 20111221
  Transmission Date: 20120608
  Serious: Yes (Death, Life-Threatening, Hospitalization, Other)
  Sender: FDA-Public Use
  Company Number: NO-MERCK-1109USA02549

PATIENT
  Age: 71 Year
  Sex: Male
  Weight: 88 kg

DRUGS (6)
  1. ZOCOR [Suspect]
     Indication: CARDIOVASCULAR DISORDER
     Route: 048
  2. RAMIPRIL [Concomitant]
     Indication: CARDIOVASCULAR DISORDER
     Route: 048
     Dates: start: 20090201
  3. CORTICOSTEROIDS (UNSPECIFIED) [Concomitant]
     Route: 065
  4. METOPROLOL [Concomitant]
     Indication: CARDIOVASCULAR DISORDER
     Route: 048
     Dates: start: 20090201
  5. TRABECTEDIN [Suspect]
     Indication: LIPOSARCOMA METASTATIC
     Dosage: DOSE TO BE GIVEN OVER 25 HOURS
     Route: 042
     Dates: start: 20110801, end: 20110802
  6. ASPIRIN [Concomitant]
     Indication: CARDIOVASCULAR DISORDER
     Route: 048

REACTIONS (14)
  - WHITE BLOOD CELL COUNT DECREASED [None]
  - RENAL FAILURE ACUTE [None]
  - FEBRILE NEUTROPENIA [None]
  - LIVER FUNCTION TEST ABNORMAL [None]
  - PANCYTOPENIA [None]
  - PLATELET COUNT DECREASED [None]
  - ANURIA [None]
  - BLOOD CREATININE INCREASED [None]
  - DRUG INTERACTION [None]
  - BLOOD CREATINE PHOSPHOKINASE INCREASED [None]
  - ASCITES [None]
  - BONE MARROW FAILURE [None]
  - TROPONIN INCREASED [None]
  - PLEURAL EFFUSION [None]
